FAERS Safety Report 13254503 (Version 1)
Quarter: 2017Q1

REPORT INFORMATION
  Report Type: Spontaneous
  Country: MX (occurrence: MX)
  Receive Date: 20170221
  Receipt Date: 20170221
  Transmission Date: 20170428
  Serious: Yes (Other)
  Sender: FDA-Public Use
  Company Number: MX-ROCHE-1895926

PATIENT
  Sex: Female

DRUGS (1)
  1. KADCYLA [Suspect]
     Active Substance: ADO-TRASTUZUMAB EMTANSINE
     Indication: BREAST CANCER METASTATIC
     Dosage: ADMINISTERED BY 4 CYCLES OF T-DM1
     Route: 065

REACTIONS (2)
  - Encephalopathy [Recovered/Resolved]
  - Cognitive disorder [Recovered/Resolved]
